FAERS Safety Report 5268238-1 (Version None)
Quarter: 2007Q1

REPORT INFORMATION
  Report Type: 
  Country: None (occurrence: None)
  Receive Date: 20070319
  Receipt Date: 20070305
  Transmission Date: 20070707
  Serious: Yes (Other)
  Sender: FDA-Public Use
  Company Number: 2007CG00402

PATIENT
  Age: 26 Year
  Sex: Female

DRUGS (1)
  1. NAROPEINE [Suspect]
     Indication: EPIDURAL ANAESTHESIA
     Route: 008
     Dates: start: 20070101, end: 20070101

REACTIONS (1)
  - EPILEPSY [None]
